FAERS Safety Report 23668667 (Version 1)
Quarter: 2024Q1

REPORT INFORMATION
  Report Type: Spontaneous
  Country: US (occurrence: None)
  Receive Date: 20240323
  Receipt Date: 20240323
  Transmission Date: 20240410
  Serious: Yes (Other)
  Sender: FDA-Public Use
  Company Number: None

PATIENT
  Sex: Female

DRUGS (2)
  1. TRULICITY [Suspect]
     Active Substance: DULAGLUTIDE
  2. MOUNJARO [Suspect]
     Active Substance: TIRZEPATIDE

REACTIONS (7)
  - Arthralgia [None]
  - Musculoskeletal stiffness [None]
  - Joint noise [None]
  - Pain [None]
  - Movement disorder [None]
  - Burning sensation [None]
  - Burning sensation [None]

NARRATIVE: CASE EVENT DATE: 20240310
